APPROVED DRUG PRODUCT: ACETYLCYSTEINE
Active Ingredient: ACETYLCYSTEINE
Strength: 20%
Dosage Form/Route: SOLUTION;INHALATION, ORAL
Application: A203853 | Product #001 | TE Code: AN
Applicant: ALVOGEN INC
Approved: Jun 21, 2012 | RLD: No | RS: No | Type: RX